FAERS Safety Report 7110568-2 (Version None)
Quarter: 2010Q4

REPORT INFORMATION
  Report Type: 
  Country: None (occurrence: None)
  Receive Date: 20101118
  Receipt Date: 20101111
  Transmission Date: 20110411
  Serious: Yes (Death, Life-Threatening, Other)
  Sender: FDA-Public Use
  Company Number: JP-ROCHE-732017

PATIENT
  Sex: Female
  Weight: 46 kg

DRUGS (9)
  1. AVASTIN [Suspect]
     Indication: LUNG SQUAMOUS CELL CARCINOMA STAGE UNSPECIFIED
     Route: 041
     Dates: start: 20100802, end: 20100802
  2. AVASTIN [Suspect]
     Route: 041
     Dates: start: 20100902, end: 20100902
  3. CARBOPLATIN [Suspect]
     Indication: LUNG SQUAMOUS CELL CARCINOMA STAGE UNSPECIFIED
     Dosage: DOSAGE IS UNCERTAIN
     Route: 041
  4. PACLITAXEL [Suspect]
     Indication: LUNG SQUAMOUS CELL CARCINOMA STAGE UNSPECIFIED
     Dosage: DOSAGE IS UNCERTAIN
     Route: 041
  5. PREDNISOLONE [Suspect]
     Indication: SCLERODERMA
     Route: 041
     Dates: start: 20100609, end: 20100926
  6. FLURBIPROFEN [Suspect]
     Indication: CANCER PAIN
     Route: 041
     Dates: start: 20100713, end: 20100926
  7. OMEPRAL [Concomitant]
     Route: 041
     Dates: start: 20100709, end: 20100926
  8. VENA [Concomitant]
     Route: 048
     Dates: start: 20100802, end: 20100802
  9. OXINORM [Concomitant]
     Route: 048
     Dates: start: 20100803, end: 20100803

REACTIONS (4)
  - DISEASE PROGRESSION [None]
  - DUODENAL STENOSIS [None]
  - GASTROINTESTINAL HAEMORRHAGE [None]
  - NEUTROPHIL COUNT DECREASED [None]
